FAERS Safety Report 15013001 (Version 1)
Quarter: 2018Q2

REPORT INFORMATION
  Report Type: Spontaneous
  Country: DE (occurrence: DE)
  Receive Date: 20180614
  Receipt Date: 20180614
  Transmission Date: 20180711
  Serious: Yes (Hospitalization)
  Sender: FDA-Public Use
  Company Number: DE-TEVA-2018-DE-907611

PATIENT
  Age: 60 Year
  Sex: Male
  Weight: 80 kg

DRUGS (18)
  1. POSACONAZOLE [Concomitant]
     Active Substance: POSACONAZOLE
     Dosage: 100 MG, 0-3-0-0, TABLETTEN
     Route: 048
  2. NOVORAPID [Concomitant]
     Active Substance: INSULIN ASPART
     Dosage: SCHEMA, INJEKTIONS/INFUSIONSLOSUNG
     Route: 058
  3. NEUPOGEN [Concomitant]
     Active Substance: FILGRASTIM
     Dosage: 48 IE, SCHEMA, INJEKTIONS/INFUSIONSLOSUNG
     Route: 058
  4. TACROLIMUS. [Suspect]
     Active Substance: TACROLIMUS
     Dosage: 5 MG, 1-0-0-0, TABLETTEN
     Route: 048
  5. PREDNISOLONE. [Suspect]
     Active Substance: PREDNISOLONE
     Dosage: 10 MG, 1-0-0-0, TABLETTEN
     Route: 048
  6. AMLODIPINE [Concomitant]
     Active Substance: AMLODIPINE BESYLATE
     Dosage: 2.5 MG, 1-0-0-0, TABLETTEN
     Route: 048
  7. FLUVASTATIN [Concomitant]
     Active Substance: FLUVASTATIN SODIUM
     Dosage: 40 MG, 0-0-1-0, TABLETTEN
     Route: 048
  8. PREGABALIN. [Concomitant]
     Active Substance: PREGABALIN
     Dosage: 50 MG, 1-0-1-0, TABLETTEN
     Route: 048
  9. ARANESP [Concomitant]
     Active Substance: DARBEPOETIN ALFA
     Dosage: 100 MICROG/ WOCHE, 1-0-0-0, INJEKTIONS/INFUSIONSLOSUNG
     Route: 058
  10. SALAGEN [Concomitant]
     Active Substance: PILOCARPINE HYDROCHLORIDE
     Dosage: 5 MG, 1-1-1-0, TABLETTEN
     Route: 048
  11. PANTOPRAZOL [Concomitant]
     Active Substance: PANTOPRAZOLE SODIUM
     Dosage: 40 MG, 1-0-1-0, TABLETTEN
     Route: 048
  12. BUDESONIDE. [Concomitant]
     Active Substance: BUDESONIDE
     Dosage: 3 MG, 1-1-1-0, TABLETTEN
     Route: 048
  13. TRIMETHOPRIM / SULFAMETHOXAZOL [Concomitant]
     Dosage: 800|160 MG, SCHEMA, TABLETTEN
     Route: 048
  14. SITAGLIPTIN [Concomitant]
     Active Substance: SITAGLIPTIN
     Dosage: 50 MG, 1-0-0-0, TABLETTEN
     Route: 048
  15. METOPROLOL. [Concomitant]
     Active Substance: METOPROLOL
     Dosage: 47.5 MG, 1-0-1-0, TABLETTEN
     Route: 048
  16. ACICLOVIR [Concomitant]
     Active Substance: ACYCLOVIR
     Dosage: 400 MG, 1-0-1-0, TABLETTEN
     Route: 048
  17. MAGNESIUM VERLA [Concomitant]
     Active Substance: MAGNESIUM
     Dosage: 40 MG, 2-2-2-2, TABLETTEN
     Route: 048
  18. TORASEMID [Concomitant]
     Active Substance: TORSEMIDE
     Dosage: 10 MG, 2-1-0-0, TABLETTEN
     Route: 048

REACTIONS (5)
  - Oropharyngeal pain [Unknown]
  - General physical health deterioration [Unknown]
  - Febrile infection [Unknown]
  - Pyrexia [Unknown]
  - Ear pain [Unknown]
